FAERS Safety Report 6928266-4 (Version None)
Quarter: 2010Q3

REPORT INFORMATION
  Report Type: 
  Country: None (occurrence: None)
  Receive Date: 20100817
  Receipt Date: 20100806
  Transmission Date: 20110219
  Serious: Yes (Other)
  Sender: FDA-Public Use
  Company Number: TN-ROCHE-720046

PATIENT

DRUGS (3)
  1. PEGINTERFERON ALFA-2A [Suspect]
     Route: 058
  2. RIBAVIRIN [Suspect]
     Dosage: TWO WEIGHT BASED DIVIDED DOSES PER DAY
     Route: 048
  3. PEGINTERFERON ALFA-2B [Suspect]
     Route: 058

REACTIONS (10)
  - ANAEMIA [None]
  - DEAFNESS [None]
  - HEPATITIS C [None]
  - INJECTION SITE REACTION [None]
  - MENTAL DISORDER [None]
  - NEUTROPENIA [None]
  - PERICARDIAL DISEASE [None]
  - SUICIDAL IDEATION [None]
  - THROMBOCYTOPENIA [None]
  - THYROID DISORDER [None]
